FAERS Safety Report 8053287-0 (Version None)
Quarter: 2012Q1

REPORT INFORMATION
  Report Type: 
  Country: None (occurrence: None)
  Receive Date: 20120118
  Receipt Date: 20120116
  Transmission Date: 20120608
  Serious: Yes (Death, Other)
  Sender: FDA-Public Use
  Company Number: US-BAYER-2011-061406

PATIENT
  Age: 59 Year
  Sex: Female

DRUGS (8)
  1. NEXAVAR [Suspect]
     Dosage: 200 MG, BID
     Route: 048
     Dates: end: 20111017
  2. NEXAVAR [Suspect]
     Dosage: 1 IN AM AND 1 IN PM
  3. DRUGS FOR OBSTRUCTIVE AIRWAY DISEASES [Concomitant]
  4. NEXAVAR [Suspect]
     Indication: HEPATIC NEOPLASM MALIGNANT
     Dosage: 400 MG, BID
     Route: 048
     Dates: start: 20110706
  5. LORAZEPAM [Concomitant]
  6. CODEINE SUL TAB [Concomitant]
  7. SPIRONOLACTONE [Concomitant]
  8. PROMETHAZINE [Concomitant]

REACTIONS (6)
  - GASTROOESOPHAGEAL REFLUX DISEASE [None]
  - LUNG DISORDER [None]
  - HEPATIC FAILURE [None]
  - HEPATIC VEIN THROMBOSIS [None]
  - COW'S MILK INTOLERANCE [None]
  - UPPER GASTROINTESTINAL HAEMORRHAGE [None]
